FAERS Safety Report 15913957 (Version 2)
Quarter: 2019Q1

REPORT INFORMATION
  Report Type: Spontaneous
  Country: US (occurrence: US)
  Receive Date: 20190204
  Receipt Date: 20190326
  Transmission Date: 20190417
  Serious: No
  Sender: FDA-Public Use
  Company Number: US-PFIZER INC-2019052235

PATIENT
  Age: 71 Year
  Sex: Male

DRUGS (2)
  1. VIAGRA [Suspect]
     Active Substance: SILDENAFIL CITRATE
     Indication: ERECTILE DYSFUNCTION
     Dosage: UNK, 1X/DAY
     Dates: start: 2011
  2. VIAGRA [Suspect]
     Active Substance: SILDENAFIL CITRATE
     Indication: PAIN IN EXTREMITY

REACTIONS (2)
  - Pre-existing condition improved [Not Recovered/Not Resolved]
  - Therapeutic response unexpected [Not Recovered/Not Resolved]

NARRATIVE: CASE EVENT DATE: 2011
